FAERS Safety Report 8208763 (Version 2)
Quarter: 2013Q2

REPORT INFORMATION
  Report Type: Spontaneous
  Country: US (occurrence: None)
  Receive Date: 20110915
  Receipt Date: 20130103
  Transmission Date: 20140414
  Serious: Yes (Life-Threatening, Hospitalization)
  Sender: FDA-Public Use
  Company Number: DSA_47162_2011

PATIENT
  Age: 55 Year
  Sex: Female

DRUGS (1)
  1. XENAZINE [Suspect]
     Indication: HUNTINGTON^S DISEASE
     Dosage: (25 MG TID ORAL)
     Route: 048
     Dates: end: 201105

REACTIONS (3)
  - SUICIDE ATTEMPT [None]
  - OVERDOSE [None]
  - Suicidal ideation [None]
